FAERS Safety Report 12307348 (Version 1)
Quarter: 2016Q2

REPORT INFORMATION
  Report Type: Spontaneous
  Country: RU (occurrence: RU)
  Receive Date: 20160426
  Receipt Date: 20160426
  Transmission Date: 20160815
  Serious: No
  Sender: FDA-Public Use
  Company Number: RU-ALKERMES INC.-ALK-2015-000505

PATIENT

DRUGS (1)
  1. VIVITROL [Suspect]
     Active Substance: NALTREXONE
     Indication: ALCOHOLISM
     Dosage: 380 MG, UNK
     Route: 030

REACTIONS (5)
  - Inappropriate schedule of drug administration [Recovered/Resolved]
  - Irritability [Unknown]
  - Anxiety [Unknown]
  - Affect lability [Unknown]
  - Alcoholism [Unknown]
